FAERS Safety Report 23650983 (Version 3)
Quarter: 2024Q4

REPORT INFORMATION
  Report Type: Other
  Country: JP (occurrence: JP)
  Receive Date: 20240320
  Receipt Date: 20241125
  Transmission Date: 20250115
  Serious: Yes (Other)
  Sender: DEXCEL LTD.
  Company Number: JP-DEXPHARM-2024-0570

PATIENT
  Age: 82 Year
  Sex: Male

DRUGS (4)
  1. CYCLOPHOSPHAMIDE [Interacting]
     Active Substance: CYCLOPHOSPHAMIDE
     Dosage: NA
  2. VINCRISTINE [Suspect]
     Active Substance: VINCRISTINE
     Dosage: NA
  3. DOXORUBICIN [Suspect]
     Active Substance: DOXORUBICIN
     Dosage: NA
  4. DEXAMETHASONE [Interacting]
     Active Substance: DEXAMETHASONE
     Dosage: NA

REACTIONS (4)
  - Hepatotoxicity [Recovered/Resolved]
  - Alanine aminotransferase increased [Recovered/Resolved]
  - Hyperbilirubinaemia [Recovered/Resolved]
  - Drug interaction [Recovered/Resolved]
